FAERS Safety Report 7424695-3 (Version None)
Quarter: 2011Q2

REPORT INFORMATION
  Report Type: 
  Country: None (occurrence: None)
  Receive Date: 20110419
  Receipt Date: 20110406
  Transmission Date: 20111010
  Serious: Yes (Death, Hospitalization, Other)
  Sender: FDA-Public Use
  Company Number: US-ELI_LILLY_AND_COMPANY-US201103005047

PATIENT
  Sex: Male
  Weight: 67.12 kg

DRUGS (1)
  1. FORTEO [Suspect]
     Indication: OSTEOPOROSIS
     Dosage: 20 UG, DAILY (1/D)
     Route: 058
     Dates: start: 20090401, end: 20110201

REACTIONS (4)
  - LOCALISED INFECTION [None]
  - CLOSTRIDIUM DIFFICILE COLITIS [None]
  - HOSPITALISATION [None]
  - FALL [None]
